FAERS Safety Report 16876828 (Version 1)
Quarter: 2019Q4

REPORT INFORMATION
  Report Type: Spontaneous
  Country: GB (occurrence: GB)
  Receive Date: 20191002
  Receipt Date: 20191002
  Transmission Date: 20200122
  Serious: Yes (Hospitalization, Other)
  Sender: FDA-Public Use
  Company Number: GB-ACCORD-156157

PATIENT
  Age: 80 Year
  Sex: Female
  Weight: 64 kg

DRUGS (14)
  1. GLICLAZIDE [Concomitant]
     Active Substance: GLICLAZIDE
     Dosage: EACH MORNING
     Dates: start: 20190619
  2. EPILIM [Concomitant]
     Active Substance: VALPROATE SODIUM
     Dosage: (DOSE REDUCED MAY 19)
     Dates: start: 20190718
  3. TOLTERODINE/TOLTERODINE L-TARTRATE [Concomitant]
     Dates: start: 20190619
  4. METFORMIN [Concomitant]
     Active Substance: METFORMIN HYDROCHLORIDE
     Indication: DIABETES MELLITUS
     Dates: start: 20190619
  5. AMITRIPTYLINE [Suspect]
     Active Substance: AMITRIPTYLINE
     Indication: NEURALGIA
     Dosage: EACH NIGHT
     Dates: start: 20180810, end: 20180813
  6. ATORVASTATIN [Concomitant]
     Active Substance: ATORVASTATIN
     Dosage: BEFORE BEDTIME
     Dates: start: 20190619
  7. FUROSEMIDE. [Concomitant]
     Active Substance: FUROSEMIDE
     Indication: PERIPHERAL SWELLING
     Dosage: (NEW DOSE) - MEDIDOSE
     Dates: start: 20190522
  8. OMEPRAZOLE. [Concomitant]
     Active Substance: OMEPRAZOLE
     Dates: start: 20190619
  9. PROPRANOLOL [Concomitant]
     Active Substance: PROPRANOLOL HYDROCHLORIDE
     Indication: TREMOR
     Dosage: AS ADVISED BY HOSPITAL
     Dates: start: 20190619
  10. GABAPENTIN. [Concomitant]
     Active Substance: GABAPENTIN
     Dosage: UP TO THREE TIMES A DAY AS ADVISED BY CONSULTANTT
     Dates: start: 20190509, end: 20190805
  11. LISINOPRIL. [Concomitant]
     Active Substance: LISINOPRIL
     Dosage: (NEW DOSE OF 60 MG/DAY)
     Dates: start: 20190619
  12. AMLODIPINE [Concomitant]
     Active Substance: AMLODIPINE BESYLATE
     Dates: start: 20190619
  13. WARFARIN [Concomitant]
     Active Substance: WARFARIN
     Dosage: AS DIRECTED
     Dates: start: 20190718
  14. EPILIM [Concomitant]
     Active Substance: VALPROATE SODIUM
     Dosage: (DOSE INCREASED BY HOSPITAL)
     Dates: start: 20190522, end: 20190717

REACTIONS (1)
  - Epilepsy [Recovered/Resolved]

NARRATIVE: CASE EVENT DATE: 20180813
